FAERS Safety Report 26004592 (Version 1)
Quarter: 2025Q4

REPORT INFORMATION
  Report Type: Spontaneous
  Country: US (occurrence: US)
  Receive Date: 20251106
  Receipt Date: 20251106
  Transmission Date: 20260117
  Serious: No
  Sender: ABBVIE
  Company Number: US-ABBVIE-6525974

PATIENT
  Age: 45 Year
  Sex: Female

DRUGS (4)
  1. HUMIRA [Suspect]
     Active Substance: ADALIMUMAB
     Indication: Nasal polyps
     Route: 058
  2. DUPILUMAB [Suspect]
     Active Substance: DUPILUMAB
     Indication: Nasal polyps
     Dosage: FORM STRENGTH 300 M G/2 ML AT A DOSE OF 300 MG QO W
     Route: 058
     Dates: start: 20250509
  3. DUPILUMAB [Suspect]
     Active Substance: DUPILUMAB
     Indication: Nasal polyps
     Dosage: FORM STRENGTH 300 M G/2 ML AT A DOSE OF 300 MG QO W
     Route: 058
  4. DUPILUMAB [Suspect]
     Active Substance: DUPILUMAB
     Indication: Nasal polyps
     Dosage: FORM STRENGTH 300 M G/2 ML AT A DOSE OF 300 MG QO W
     Route: 058

REACTIONS (4)
  - Nasal polyps [Unknown]
  - Asthma [Recovered/Resolved]
  - Dyspnoea [Unknown]
  - Injury associated with device [Unknown]

NARRATIVE: CASE EVENT DATE: 20250101
